FAERS Safety Report 18893266 (Version 12)
Quarter: 2021Q2

REPORT INFORMATION
  Report Type: Report from Study
  Country: IL (occurrence: IL)
  Receive Date: 20210215
  Receipt Date: 20210629
  Transmission Date: 20210717
  Serious: Yes (Death, Hospitalization)
  Sender: FDA-Public Use
  Company Number: IL-ROCHE-2762226

PATIENT
  Age: 77 Year
  Sex: Female
  Weight: 73.7 kg

DRUGS (27)
  1. ALDACTONE [Concomitant]
     Active Substance: SPIRONOLACTONE
     Indication: HYPERTENSION
     Route: 048
     Dates: start: 20201001
  2. FUSID (ISRAEL) [Concomitant]
     Indication: HYPERTENSION
     Route: 048
     Dates: start: 202012
  3. ATEZOLIZUMAB. [Suspect]
     Active Substance: ATEZOLIZUMAB
     Indication: HEPATOCELLULAR CARCINOMA
     Dosage: START DATE OF MOST RECENT DOSE OF STUDY DRUG PRIOR TO AE: 15/DEC/2020?DOSE LAST STUDY DRUG ADMIN PRI
     Route: 041
     Dates: start: 20201125
  4. TIRAGOLUMAB. [Suspect]
     Active Substance: TIRAGOLUMAB
     Indication: HEPATOCELLULAR CARCINOMA
     Dosage: DOSE LAST STUDY DRUG ADMIN PRIOR AE: 600 MG?START DATE OF MOST RECENT DOSE OF STUDY DRUG PRIOR TO AE
     Route: 042
     Dates: start: 20201125
  5. ACAMOL (ISRAEL) [Concomitant]
     Indication: PAIN
     Route: 048
  6. KEFTRIAXON [Concomitant]
     Indication: ENCEPHALOPATHY
     Route: 042
     Dates: start: 20210110, end: 20210110
  7. KEFTRIAXON [Concomitant]
     Indication: INFECTION
     Route: 042
     Dates: start: 20210125, end: 20210125
  8. KONAKION [Concomitant]
     Active Substance: PHYTONADIONE
     Indication: ENCEPHALOPATHY
     Route: 048
     Dates: start: 20210110, end: 20210110
  9. MONUROL [Concomitant]
     Active Substance: FOSFOMYCIN TROMETHAMINE
     Indication: INFECTION
     Route: 048
     Dates: start: 20210202, end: 20210202
  10. PROPANOLOL [Concomitant]
     Active Substance: PROPRANOLOL HYDROCHLORIDE
     Indication: HYPERTENSION
     Route: 048
     Dates: start: 201505
  11. AMPICILLIN [Concomitant]
     Active Substance: AMPICILLIN
     Indication: ENCEPHALOPATHY
     Route: 042
     Dates: start: 20210110, end: 20210110
  12. CEFTRIAXONE?VIT [Concomitant]
     Indication: INFECTION
     Route: 042
     Dates: start: 20210124, end: 20210124
  13. MIDOLAM [Concomitant]
     Indication: SEDATION
     Route: 042
     Dates: start: 20210123, end: 20210123
  14. AMLODIPINE [Concomitant]
     Active Substance: AMLODIPINE BESYLATE
     Indication: HYPERTENSION
     Route: 048
     Dates: start: 20210111, end: 20210117
  15. SODIUM CHLORIDE. [Concomitant]
     Active Substance: SODIUM CHLORIDE
     Route: 042
     Dates: start: 20210123, end: 20210124
  16. ACYCLOVIR. [Concomitant]
     Active Substance: ACYCLOVIR
     Indication: ENCEPHALOPATHY
     Route: 042
     Dates: start: 20210110, end: 20210111
  17. AMLODIPINE [Concomitant]
     Active Substance: AMLODIPINE BESYLATE
     Route: 048
     Dates: start: 20210201, end: 20210201
  18. HALOPERIDOL. [Concomitant]
     Active Substance: HALOPERIDOL
     Indication: CONFUSIONAL STATE
     Route: 030
     Dates: start: 20210124, end: 20210124
  19. TRAZODIL [Concomitant]
     Indication: CONFUSIONAL STATE
     Route: 048
     Dates: start: 20210124, end: 20210127
  20. AMIKACIN. [Concomitant]
     Active Substance: AMIKACIN
     Indication: INFECTION
     Dates: start: 20210201, end: 20210201
  21. DEXAMETAZONA [Concomitant]
     Indication: ENCEPHALOPATHY
     Route: 042
     Dates: start: 20210110, end: 20210111
  22. FUSID (ISRAEL) [Concomitant]
     Indication: HYPERTENSION
     Route: 048
     Dates: start: 20210201, end: 20210203
  23. LOSARDEX [Concomitant]
     Active Substance: LOSARTAN POTASSIUM
     Indication: HYPERTENSION
     Route: 048
     Dates: start: 20210201, end: 20210203
  24. CETOMACROGOL [Concomitant]
     Active Substance: COSMETICS
     Indication: LIPOMA
     Route: 061
  25. AMPICILLIN [Concomitant]
     Active Substance: AMPICILLIN
     Route: 042
     Dates: start: 20210111, end: 20210111
  26. BEVACIZUMAB. [Suspect]
     Active Substance: BEVACIZUMAB
     Indication: HEPATOCELLULAR CARCINOMA
     Dosage: START DATE OF MOST RECENT DOSE (1150 MG) OF STUDY DRUG PRIOR TO AE: 15/DEC/2020
     Route: 042
     Dates: start: 20201125
  27. NEXIUM [Concomitant]
     Active Substance: ESOMEPRAZOLE MAGNESIUM
     Indication: PROPHYLAXIS
     Route: 048
     Dates: start: 202010

REACTIONS (4)
  - Hepatic enzyme increased [Not Recovered/Not Resolved]
  - Hepatic encephalopathy [Recovered/Resolved with Sequelae]
  - Delirium [Recovered/Resolved with Sequelae]
  - Atrial fibrillation [Not Recovered/Not Resolved]

NARRATIVE: CASE EVENT DATE: 20210105
